FAERS Safety Report 12105089 (Version 2)
Quarter: 2016Q1

REPORT INFORMATION
  Report Type: Spontaneous
  Country: NL (occurrence: NL)
  Receive Date: 20160223
  Receipt Date: 20160229
  Transmission Date: 20160526
  Serious: Yes (Death, Other)
  Sender: FDA-Public Use
  Company Number: NL-JNJFOC-20160215173

PATIENT
  Age: 75 Year
  Sex: Male

DRUGS (3)
  1. DIPIPERON [Concomitant]
     Active Substance: PIPAMPERONE
     Route: 048
  2. RISPERIDONE. [Suspect]
     Active Substance: RISPERIDONE
     Indication: SUSPICIOUSNESS
     Route: 048
     Dates: end: 20150319
  3. RISPERIDONE. [Suspect]
     Active Substance: RISPERIDONE
     Indication: SUSPICIOUSNESS
     Route: 048
     Dates: start: 20150313

REACTIONS (4)
  - Somnolence [Unknown]
  - Malaise [Unknown]
  - Death [Fatal]
  - Syncope [Unknown]

NARRATIVE: CASE EVENT DATE: 20150318
